FAERS Safety Report 7502872-0 (Version None)
Quarter: 2011Q2

REPORT INFORMATION
  Report Type: 
  Country: None (occurrence: None)
  Receive Date: 20110525
  Receipt Date: 20100818
  Transmission Date: 20111010
  Serious: No
  Sender: FDA-Public Use
  Company Number: US-NOVEN-ALL1-2010-04394

PATIENT
  Sex: Female
  Weight: 69.841 kg

DRUGS (12)
  1. EFFEXOR XR [Concomitant]
  2. STRATTERA [Concomitant]
     Dosage: 25 MG, 1X/DAY:QD
     Route: 048
     Dates: start: 20040101
  3. RISPERDAL [Concomitant]
     Dosage: 1 MG, 1X/DAY:QD, AT NIGHT
     Route: 048
     Dates: start: 20090101
  4. KLONOPIN [Concomitant]
     Dosage: 1 MG, 4X/DAY:QID
     Route: 048
     Dates: start: 20060101
  5. KLONOPIN [Concomitant]
  6. EFFEXOR XR [Concomitant]
     Dosage: 150 MG, 1X/DAY:QD
     Route: 048
     Dates: start: 20000101
  7. LAMICTAL [Concomitant]
     Dosage: 25 MG, 1X/DAY:QD
     Route: 048
     Dates: start: 20060101
  8. DAYTRANA [Suspect]
  9. SEASONIQUE [Concomitant]
     Dosage: UNK, 1X/DAY:QD
     Route: 048
     Dates: start: 20100501
  10. DAYTRANA [Suspect]
     Dosage: 20 MG, 1X/DAY:QD
     Route: 062
     Dates: start: 20100810
  11. ABILIFY [Concomitant]
     Dosage: 5 MG, 1X/DAY:QD
     Route: 048
     Dates: start: 20050101
  12. TOPAMAX [Concomitant]
     Dosage: 50 MG, 1X/DAY:QD
     Route: 048
     Dates: start: 20070101

REACTIONS (5)
  - OFF LABEL USE [None]
  - PRODUCT QUALITY ISSUE [None]
  - CONDITION AGGRAVATED [None]
  - WRONG TECHNIQUE IN DRUG USAGE PROCESS [None]
  - MOOD SWINGS [None]
